FAERS Safety Report 14387647 (Version 1)
Quarter: 2018Q1

REPORT INFORMATION
  Report Type: Spontaneous
  Country: US (occurrence: US)
  Receive Date: 20180115
  Receipt Date: 20180115
  Transmission Date: 20180509
  Serious: Yes (Other)
  Sender: FDA-Public Use
  Company Number: US-SA-2017SA181447

PATIENT
  Age: 63 Year
  Sex: Female

DRUGS (11)
  1. EMEND [Concomitant]
     Active Substance: APREPITANT
  2. AMLODIPINE [Concomitant]
     Active Substance: AMLODIPINE BESYLATE
     Route: 065
  3. BENADRYL [Concomitant]
     Active Substance: DIPHENHYDRAMINE HYDROCHLORIDE
  4. NEULASTA [Concomitant]
     Active Substance: PEGFILGRASTIM
  5. DECADRON [Concomitant]
     Active Substance: DEXAMETHASONE
  6. TAXOTERE [Suspect]
     Active Substance: DOCETAXEL
     Indication: BREAST CANCER FEMALE
     Route: 051
     Dates: start: 20110610, end: 20110610
  7. TAXOTERE [Suspect]
     Active Substance: DOCETAXEL
     Indication: BREAST CANCER FEMALE
     Route: 051
     Dates: start: 20110923, end: 20110923
  8. ALOXI [Concomitant]
     Active Substance: PALONOSETRON HYDROCHLORIDE
  9. CYTOXAN [Concomitant]
     Active Substance: CYCLOPHOSPHAMIDE
  10. SOLU-CORTEF [Concomitant]
     Active Substance: HYDROCORTISONE SODIUM SUCCINATE
  11. PEPCID [Concomitant]
     Active Substance: FAMOTIDINE

REACTIONS (2)
  - Alopecia [Not Recovered/Not Resolved]
  - Psychological trauma [Unknown]

NARRATIVE: CASE EVENT DATE: 201106
